FAERS Safety Report 20751347 (Version 1)
Quarter: 2022Q2

REPORT INFORMATION
  Report Type: Spontaneous
  Country: US (occurrence: US)
  Receive Date: 20220426
  Receipt Date: 20220426
  Transmission Date: 20220721
  Serious: No
  Sender: FDA-Public Use
  Company Number: US-PFIZER INC-202101760945

PATIENT
  Age: 73 Year
  Sex: Female

DRUGS (1)
  1. BRAFTOVI [Suspect]
     Active Substance: ENCORAFENIB
     Dosage: 75 MG,UNK

REACTIONS (4)
  - Product storage error [Unknown]
  - Visual impairment [Unknown]
  - Dry eye [Unknown]
  - Dry skin [Unknown]
